FAERS Safety Report 8443018 (Version 6)
Quarter: 2013Q4

REPORT INFORMATION
  Report Type: Spontaneous
  Country: US (occurrence: US)
  Receive Date: 20120306
  Receipt Date: 20131231
  Transmission Date: 20140711
  Serious: Yes (Hospitalization, Other)
  Sender: FDA-Public Use
  Company Number: US-ROCHE-1020269

PATIENT
  Sex: Female
  Weight: 59.02 kg

DRUGS (2)
  1. ACCUTANE [Suspect]
     Indication: ACNE
     Route: 065
     Dates: start: 199507, end: 199511
  2. ACCUTANE [Suspect]
     Route: 065
     Dates: start: 199810, end: 199903

REACTIONS (11)
  - Depression [Unknown]
  - Colitis ulcerative [Unknown]
  - Irritable bowel syndrome [Unknown]
  - Emotional distress [Unknown]
  - Crohn^s disease [Unknown]
  - Large intestine polyp [Unknown]
  - Suicidal ideation [Unknown]
  - Suicide attempt [Unknown]
  - Bipolar disorder [Unknown]
  - Gastritis erosive [Unknown]
  - Gastric ulcer [Unknown]
